FAERS Safety Report 7311645-3 (Version None)
Quarter: 2011Q1

REPORT INFORMATION
  Report Type: 
  Country: None (occurrence: None)
  Receive Date: 20110224
  Receipt Date: 20110215
  Transmission Date: 20110831
  Serious: Yes (Other)
  Sender: FDA-Public Use
  Company Number: JP-ASTRAZENECA-2010SE58052

PATIENT
  Age: 49 Year
  Sex: Male

DRUGS (13)
  1. SINGULAIR [Concomitant]
     Indication: ASTHMA
     Route: 048
     Dates: start: 20100327
  2. GENINAX [Concomitant]
     Route: 048
     Dates: start: 20101118, end: 20101122
  3. ROCEPHIN [Concomitant]
     Indication: BRONCHOPNEUMONIA
     Route: 041
     Dates: start: 20101008, end: 20101008
  4. SYMBICORT [Suspect]
     Indication: ASTHMA
     Dosage: 2 DOSAGE FORM TWO TIMES A DAY
     Route: 055
     Dates: start: 20100617
  5. ROCEPHIN [Concomitant]
     Route: 041
     Dates: start: 20101118, end: 20101119
  6. ROCEPHIN [Concomitant]
     Route: 041
     Dates: start: 20101118, end: 20101119
  7. GENINAX [Concomitant]
     Indication: PNEUMONIA
     Route: 048
     Dates: start: 20101008, end: 20101012
  8. GENINAX [Concomitant]
     Route: 048
     Dates: start: 20101118, end: 20101122
  9. THEOLONG [Concomitant]
     Indication: ASTHMA
     Route: 048
  10. MUCOSOLVAN [Concomitant]
     Indication: ASTHMA
     Route: 048
  11. ROCEPHIN [Concomitant]
     Indication: PNEUMONIA
     Route: 041
     Dates: start: 20101008, end: 20101008
  12. GENINAX [Concomitant]
     Indication: BRONCHOPNEUMONIA
     Route: 048
     Dates: start: 20101008, end: 20101012
  13. ADOAIR [Concomitant]
     Indication: ASTHMA
     Route: 055
     Dates: start: 20090101, end: 20100617

REACTIONS (2)
  - BRONCHOPNEUMONIA [None]
  - LOBAR PNEUMONIA [None]
